FAERS Safety Report 21669173 (Version 2)
Quarter: 2022Q4

REPORT INFORMATION
  Report Type: Report from Study
  Country: US (occurrence: US)
  Receive Date: 20221201
  Receipt Date: 20221209
  Transmission Date: 20230113
  Serious: No
  Sender: FDA-Public Use
  Company Number: US-ABBVIE-4189923

PATIENT
  Age: 31 Year
  Sex: Female

DRUGS (2)
  1. ORILISSA [Suspect]
     Active Substance: ELAGOLIX SODIUM
     Indication: Endometriosis
     Dosage: FREQUENCY TEXT: DAILY?DISCONTINUED IN 2022.
     Route: 048
     Dates: start: 20221025
  2. ORILISSA [Suspect]
     Active Substance: ELAGOLIX SODIUM
     Indication: Endometriosis
     Dosage: DRUG STARTED IN 2022.
     Route: 048

REACTIONS (7)
  - Muscle tightness [Not Recovered/Not Resolved]
  - Pain [Not Recovered/Not Resolved]
  - Musculoskeletal stiffness [Unknown]
  - Neck pain [Not Recovered/Not Resolved]
  - Joint range of motion decreased [Unknown]
  - Arthralgia [Not Recovered/Not Resolved]
  - Tooth infection [Unknown]

NARRATIVE: CASE EVENT DATE: 20221001
